FAERS Safety Report 5124658-7 (Version None)
Quarter: 2006Q4

REPORT INFORMATION
  Report Type: 
  Country: None (occurrence: None)
  Receive Date: 20061011
  Receipt Date: 20050420
  Transmission Date: 20070319
  Serious: Yes (Hospitalization)
  Sender: FDA-Public Use
  Company Number: PHBS2005JP05679

PATIENT
  Age: 39 Year
  Sex: Male

DRUGS (1)
  1. TEGRETOL [Suspect]
     Indication: DEPRESSION
     Dosage: UNK, UNK
     Route: 048
     Dates: start: 20040707, end: 20040819

REACTIONS (19)
  - ALANINE AMINOTRANSFERASE INCREASED [None]
  - ASPARTATE AMINOTRANSFERASE INCREASED [None]
  - BLOOD IMMUNOGLOBULIN G DECREASED [None]
  - BLOOD IMMUNOGLOBULIN M DECREASED [None]
  - BLOOD LACTATE DEHYDROGENASE INCREASED [None]
  - C-REACTIVE PROTEIN INCREASED [None]
  - CYTOMEGALOVIRUS ANTIBODY POSITIVE [None]
  - DRUG HYPERSENSITIVITY [None]
  - EOSINOPHIL COUNT INCREASED [None]
  - ERYTHEMA [None]
  - FLUSHING [None]
  - HERPES ZOSTER [None]
  - HUMAN HERPES VIRUS 6 SEROLOGY POSITIVE [None]
  - LYMPHADENOPATHY [None]
  - LYMPHOCYTE COUNT DECREASED [None]
  - LYMPHOCYTE STIMULATION TEST POSITIVE [None]
  - PYREXIA [None]
  - RASH [None]
  - WHITE BLOOD CELL COUNT INCREASED [None]
